FAERS Safety Report 6248172-0 (Version None)
Quarter: 2009Q2

REPORT INFORMATION
  Report Type: 
  Country: None (occurrence: None)
  Receive Date: 20090624
  Receipt Date: 20090624
  Transmission Date: 20091009
  Serious: Yes (Other)
  Sender: FDA-Public Use
  Company Number: None

PATIENT
  Age: 51 Year
  Sex: Female
  Weight: 49.8957 kg

DRUGS (1)
  1. MOBIC [Suspect]
     Indication: PAIN
     Dosage: 7.5 TAB 1-2 TAB DAILY
     Dates: start: 20090508

REACTIONS (10)
  - CHEST DISCOMFORT [None]
  - CHEST PAIN [None]
  - DIZZINESS [None]
  - DYSPNOEA [None]
  - FEAR [None]
  - FEELING ABNORMAL [None]
  - HEART RATE ABNORMAL [None]
  - HEART RATE INCREASED [None]
  - MALAISE [None]
  - VOMITING [None]
